FAERS Safety Report 21621446 (Version 1)
Quarter: 2022Q4

REPORT INFORMATION
  Report Type: Spontaneous
  Country: KE (occurrence: KE)
  Receive Date: 20221121
  Receipt Date: 20221121
  Transmission Date: 20230112
  Serious: Yes (Life-Threatening, Hospitalization, Other)
  Sender: FDA-Public Use
  Company Number: KE-PFIZER INC-202201307929

PATIENT
  Age: 19 Month
  Sex: Male

DRUGS (5)
  1. AZITHROMYCIN [Suspect]
     Active Substance: AZITHROMYCIN
     Indication: Multisystem inflammatory syndrome in children
     Dosage: UNK
  2. CEFTRIAXONE [Suspect]
     Active Substance: CEFTRIAXONE
     Indication: Multisystem inflammatory syndrome in children
     Dosage: UNK
  3. ACETAMINOPHEN [Suspect]
     Active Substance: ACETAMINOPHEN
     Indication: Multisystem inflammatory syndrome in children
     Dosage: UNK
  4. IBUPROFEN [Suspect]
     Active Substance: IBUPROFEN
     Indication: Multisystem inflammatory syndrome in children
     Dosage: UNK
  5. NYSTATIN [Suspect]
     Active Substance: NYSTATIN
     Indication: Multisystem inflammatory syndrome in children
     Dosage: UNK

REACTIONS (2)
  - Shock [Recovered/Resolved]
  - Off label use [Unknown]
